FAERS Safety Report 9898234 (Version 2)
Quarter: 2014Q1

REPORT INFORMATION
  Report Type: Spontaneous
  Country: US (occurrence: US)
  Receive Date: 20140214
  Receipt Date: 20140214
  Transmission Date: 20141002
  Serious: No
  Sender: FDA-Public Use
  Company Number: US-GILEAD-2011-0041422

PATIENT
  Sex: Female

DRUGS (7)
  1. LETAIRIS [Suspect]
     Indication: PULMONARY HYPERTENSION
     Route: 048
     Dates: start: 20110630, end: 20110705
  2. LETAIRIS [Suspect]
     Indication: UNEVALUABLE EVENT
  3. METFORMIN [Concomitant]
  4. ASMANEX [Concomitant]
  5. WARFARIN [Concomitant]
  6. FUROSEMIDE [Concomitant]
  7. LISINOPRIL [Concomitant]

REACTIONS (4)
  - Fatigue [Unknown]
  - Dyspnoea [Unknown]
  - Fluid retention [Unknown]
  - Cardiac failure congestive [Recovered/Resolved]
